FAERS Safety Report 6807620-5 (Version None)
Quarter: 2010Q2

REPORT INFORMATION
  Report Type: 
  Country: None (occurrence: None)
  Receive Date: 20100629
  Receipt Date: 20081027
  Transmission Date: 20101027
  Serious: No
  Sender: FDA-Public Use
  Company Number: US-PFIZER INC-2008084204

PATIENT
  Sex: Female
  Weight: 81.65 kg

DRUGS (10)
  1. ZYVOX [Suspect]
     Indication: OSTEOMYELITIS
     Dosage: 600 MG, 2X/DAY
     Route: 048
     Dates: start: 20081010
  2. DARVOCET [Concomitant]
  3. TENORMIN [Concomitant]
  4. DYAZIDE [Concomitant]
  5. LYRICA [Concomitant]
  6. CORTICOSTEROIDS [Concomitant]
  7. NEXIUM [Concomitant]
  8. ULTRAM [Concomitant]
  9. CYMBALTA [Concomitant]
  10. MECLOZINE HYDROCHLORIDE [Concomitant]

REACTIONS (7)
  - COUGH [None]
  - DIARRHOEA [None]
  - DRY MOUTH [None]
  - DYSGEUSIA [None]
  - FATIGUE [None]
  - ORAL DISCOMFORT [None]
  - RASH [None]
